FAERS Safety Report 6973433-7 (Version None)
Quarter: 2010Q3

REPORT INFORMATION
  Report Type: 
  Country: None (occurrence: None)
  Receive Date: 20100909
  Receipt Date: 20100830
  Transmission Date: 20110219
  Serious: Yes (Hospitalization)
  Sender: FDA-Public Use
  Company Number: CM-MERCK-1008USA04088

PATIENT
  Age: 58 Year
  Sex: Male

DRUGS (1)
  1. STROMECTOL [Suspect]
     Route: 048
     Dates: start: 20100524

REACTIONS (4)
  - CHEST PAIN [None]
  - HAEMOPTYSIS [None]
  - HEADACHE [None]
  - VERTIGO [None]
